FAERS Safety Report 24412394 (Version 1)
Quarter: 2024Q4

REPORT INFORMATION
  Report Type: Spontaneous
  Country: US (occurrence: US)
  Receive Date: 20241008
  Receipt Date: 20241008
  Transmission Date: 20250114
  Serious: No
  Sender: PFIZER
  Company Number: US-PFIZER INC-PV202400129807

PATIENT
  Sex: Female
  Weight: 71.3 kg

DRUGS (5)
  1. IBRANCE [Suspect]
     Active Substance: PALBOCICLIB
     Indication: Breast cancer metastatic
     Dosage: UNK
  2. IBRANCE [Suspect]
     Active Substance: PALBOCICLIB
     Dosage: 75 MG DAILY X21 DAYS ON/ 7 DAYS OFF
     Route: 048
  3. IBRANCE [Suspect]
     Active Substance: PALBOCICLIB
     Dosage: 75 MG DAILY FOR 3 WEEKS, 1 WEEK OFF
     Route: 048
  4. LETROZOLE [Concomitant]
     Active Substance: LETROZOLE
     Indication: Breast cancer metastatic
     Dosage: 2.5 MG, DAILY
     Route: 048
  5. XGEVA [Concomitant]
     Active Substance: DENOSUMAB
     Dosage: 120 MG EVERY 4 WEEKS
     Route: 058

REACTIONS (2)
  - Fatigue [Recovering/Resolving]
  - Intentional product misuse [Unknown]
